FAERS Safety Report 21965914 (Version 1)
Quarter: 2023Q1

REPORT INFORMATION
  Report Type: Other
  Country: FR (occurrence: FR)
  Receive Date: 20230208
  Receipt Date: 20230208
  Transmission Date: 20230418
  Serious: Yes (Other)
  Sender: FDA-Public Use
  Company Number: None

PATIENT

DRUGS (3)
  1. ATORVASTATIN [Suspect]
     Active Substance: ATORVASTATIN
     Indication: Infarction
     Dosage: UNK
     Route: 048
     Dates: start: 20210909, end: 20221213
  2. VERAPAMIL HYDROCHLORIDE [Suspect]
     Active Substance: VERAPAMIL HYDROCHLORIDE
     Indication: Infarction
     Dosage: 40 MILLIGRAM EVERY 12 HRS
     Route: 048
     Dates: start: 20210909, end: 20221213
  3. KARDEGIC [Concomitant]
     Active Substance: ASPIRIN DL-LYSINE
     Indication: Infarction
     Dosage: 75 MILLIGRAM, QD
     Route: 002
     Dates: start: 20210909

REACTIONS (1)
  - Alopecia areata [Not Recovered/Not Resolved]

NARRATIVE: CASE EVENT DATE: 20220713
